FAERS Safety Report 4346828-8 (Version None)
Quarter: 2004Q2

REPORT INFORMATION
  Report Type: 
  Country: None (occurrence: None)
  Receive Date: 20040426
  Receipt Date: 20030121
  Transmission Date: 20050107
  Serious: Yes (Life-Threatening, Hospitalization, Other)
  Sender: FDA-Public Use
  Company Number: US-MERCK-0301USA02081

PATIENT
  Age: 67 Year
  Sex: Female
  Weight: 64 kg

DRUGS (39)
  1. [THERAPY UNSPECIFIED] [Concomitant]
     Route: 065
  2. TYLENOL (CAPLET) [Concomitant]
     Route: 065
     Dates: start: 20011206
  3. ROXICET [Concomitant]
     Route: 065
  4. NORVASC [Concomitant]
     Indication: CARDIAC DISORDER
     Route: 065
     Dates: start: 20011212
  5. LOTREL [Concomitant]
     Route: 065
  6. ASPIRIN [Concomitant]
     Route: 065
     Dates: start: 20010101
  7. ZITHROMAX [Concomitant]
     Route: 065
  8. BUTALBITAL [Concomitant]
     Indication: HEADACHE
     Route: 065
     Dates: start: 19960209, end: 20031217
  9. BUTALBITAL [Concomitant]
     Indication: PAIN
     Route: 065
     Dates: start: 19960209, end: 20031217
  10. CELEBREX [Concomitant]
     Indication: ARTHRITIS
     Route: 065
     Dates: start: 19990203, end: 19990416
  11. CIPRO [Concomitant]
     Route: 065
  12. KLONOPIN [Concomitant]
     Indication: FIBROMYALGIA
     Route: 065
     Dates: start: 20000911, end: 20030630
  13. MYCELEX [Concomitant]
     Indication: FUNGAL INFECTION
     Route: 065
  14. FLEXERIL [Concomitant]
     Indication: FIBROMYALGIA
     Route: 065
     Dates: start: 19960117, end: 20030512
  15. DIAZEPAM [Concomitant]
     Route: 065
  16. DEPAKOTE [Concomitant]
     Route: 065
     Dates: start: 20000906, end: 20001001
  17. VASOTEC [Concomitant]
     Indication: HYPERTENSION
     Route: 048
     Dates: start: 19960201, end: 20011112
  18. ESTRACE [Concomitant]
     Indication: HORMONE REPLACEMENT THERAPY
     Route: 065
     Dates: start: 19720101, end: 20031130
  19. ESTRACE [Concomitant]
     Indication: HYSTERECTOMY
     Route: 065
     Dates: start: 19720101, end: 20031130
  20. DIFLUCAN [Concomitant]
     Indication: FUNGAL INFECTION
     Route: 065
  21. AMIBID LA [Concomitant]
     Route: 065
  22. HYDROCODONE BITARTRATE [Concomitant]
     Route: 065
  23. LACTULOSE [Concomitant]
     Route: 065
  24. TOPROL-XL [Concomitant]
     Indication: CARDIAC DISORDER
     Route: 065
     Dates: start: 20011201
  25. METROGEL [Concomitant]
     Indication: FUNGAL INFECTION
     Route: 065
  26. NASONEX [Concomitant]
     Indication: SINUS DISORDER
     Route: 065
  27. AVELOX [Concomitant]
     Route: 065
  28. MACROBID [Concomitant]
     Route: 065
  29. NITROSTAT [Concomitant]
     Indication: CARDIAC DISORDER
     Route: 065
  30. PRILOSEC [Concomitant]
     Indication: ABDOMINAL PAIN UPPER
     Route: 065
  31. MIRALAX [Concomitant]
     Indication: CONSTIPATION
     Route: 065
  32. ACCUPRIL [Concomitant]
     Indication: CARDIAC DISORDER
     Route: 065
     Dates: start: 20011212
  33. QUININE SULFATE [Concomitant]
     Route: 065
  34. VIOXX [Suspect]
     Indication: FIBROMYALGIA
     Route: 048
     Dates: start: 19990301, end: 20020101
  35. VIOXX [Suspect]
     Route: 048
  36. VIOXX [Suspect]
     Indication: ARTHRITIS
     Route: 048
     Dates: start: 19990301, end: 20020101
  37. VIOXX [Suspect]
     Route: 048
  38. ZANAFLEX [Concomitant]
     Route: 065
  39. ULTRAM [Concomitant]
     Route: 065

REACTIONS (17)
  - ANXIETY [None]
  - BACK DISORDER [None]
  - BLOOD CHOLESTEROL INCREASED [None]
  - BLOOD TRIGLYCERIDES INCREASED [None]
  - CEREBRAL HAEMORRHAGE [None]
  - CHEST PAIN [None]
  - CORONARY ARTERY DISEASE [None]
  - DECREASED ACTIVITY [None]
  - DEPRESSION [None]
  - DYSPEPSIA [None]
  - GASTRIC ULCER [None]
  - GASTROOESOPHAGEAL REFLUX DISEASE [None]
  - JOINT INJURY [None]
  - MYOCARDIAL INFARCTION [None]
  - PAIN [None]
  - RENAL FAILURE [None]
  - STOMACH DISCOMFORT [None]
